FAERS Safety Report 9209518 (Version 2)
Quarter: 2013Q2

REPORT INFORMATION
  Report Type: Report from Study
  Country: US (occurrence: US)
  Receive Date: 20130404
  Receipt Date: 20130508
  Transmission Date: 20140414
  Serious: Yes (Hospitalization)
  Sender: FDA-Public Use
  Company Number: US-ABBOTT-13P-163-1070579-00

PATIENT
  Age: 35 Year
  Sex: Female
  Weight: 59.02 kg

DRUGS (6)
  1. HUMIRA [Suspect]
     Indication: CROHN^S DISEASE
     Dates: start: 20120623, end: 20120623
  2. HUMIRA [Suspect]
     Route: 058
     Dates: start: 20120707, end: 20120707
  3. HUMIRA [Suspect]
     Route: 058
     Dates: start: 20120721, end: 201208
  4. HUMIRA [Suspect]
     Route: 058
     Dates: start: 201209, end: 20130327
  5. HUMIRA [Suspect]
     Route: 058
     Dates: start: 20130418
  6. 6-MP [Concomitant]
     Indication: CROHN^S DISEASE

REACTIONS (5)
  - Intestinal obstruction [Recovered/Resolved]
  - Intestinal obstruction [Recovering/Resolving]
  - Gastrointestinal inflammation [Recovering/Resolving]
  - Abdominal adhesions [Not Recovered/Not Resolved]
  - Urinary tract infection [Recovered/Resolved]
